FAERS Safety Report 5205202-2 (Version None)
Quarter: 2007Q1

REPORT INFORMATION
  Report Type: 
  Country: None (occurrence: None)
  Receive Date: 20070110
  Receipt Date: 20070102
  Transmission Date: 20070707
  Serious: Yes (Disabling, Other)
  Sender: FDA-Public Use
  Company Number: CA-PFIZER INC-2006143132

PATIENT
  Sex: Female
  Weight: 63.6 kg

DRUGS (13)
  1. CAMPTOSAR [Suspect]
     Indication: COLON CANCER
     Route: 042
  2. DEXAMETHASONE [Suspect]
     Indication: PREMEDICATION
     Route: 042
  3. DEXAMETHASONE [Suspect]
     Route: 048
  4. DECADRON [Concomitant]
     Indication: PREMEDICATION
     Route: 042
  5. PROCHLORPERAZINE [Concomitant]
     Indication: PROPHYLAXIS OF NAUSEA AND VOMITING
     Route: 048
  6. PROCHLORPERAZINE [Concomitant]
     Route: 042
  7. ZOFRAN [Concomitant]
     Indication: PREMEDICATION
     Route: 042
  8. SYNTHROID [Concomitant]
     Route: 048
  9. DILTIAZEM HCL [Concomitant]
     Route: 048
  10. LIPITOR [Concomitant]
     Route: 048
  11. NITROGLYCERIN [Concomitant]
     Route: 061
  12. FERROUS SULFATE TAB [Concomitant]
     Route: 048
  13. DOMPERIDONE [Concomitant]
     Route: 048

REACTIONS (1)
  - ANGIOEDEMA [None]
